FAERS Safety Report 4336163-6 (Version None)
Quarter: 2004Q1

REPORT INFORMATION
  Report Type: 
  Country: None (occurrence: None)
  Receive Date: 20040329
  Receipt Date: 20040107
  Transmission Date: 20041129
  Serious: No
  Sender: FDA-Public Use
  Company Number: USA040155995

PATIENT
  Age: 12 Year
  Sex: Male
  Weight: 48 kg

DRUGS (1)
  1. STRATTERA [Suspect]
     Indication: ATTENTION DEFICIT/HYPERACTIVITY DISORDER
     Dosage: 60 MG/ IN THE MORNING

REACTIONS (5)
  - EYE DISORDER [None]
  - FATIGUE [None]
  - HYPERSOMNIA [None]
  - MYDRIASIS [None]
  - VISUAL DISTURBANCE [None]
